FAERS Safety Report 10266892 (Version 2)
Quarter: 2015Q2

REPORT INFORMATION
  Report Type: Spontaneous
  Country: ES (occurrence: ES)
  Receive Date: 20140630
  Receipt Date: 20150626
  Transmission Date: 20150821
  Serious: Yes (Hospitalization)
  Sender: FDA-Public Use
  Company Number: ES-UCBSA-2014003674

PATIENT
  Age: 36 Year
  Sex: Male

DRUGS (7)
  1. TOPAMAX [Suspect]
     Active Substance: TOPIRAMATE
     Dosage: DOUBLE DOSE
     Route: 048
     Dates: start: 20140621
  2. TOPAMAX [Suspect]
     Active Substance: TOPIRAMATE
     Indication: EPILEPSY
     Dosage: UNKNOWN
     Route: 048
  3. TRILEPTAL [Suspect]
     Active Substance: OXCARBAZEPINE
     Indication: EPILEPSY
     Dosage: UNKNOWN
     Route: 048
  4. KEPPRA [Suspect]
     Active Substance: LEVETIRACETAM
     Dosage: 1000 MG, 2X/12 HOURS
     Route: 048
  5. TRILEPTAL [Suspect]
     Active Substance: OXCARBAZEPINE
     Dosage: DOUBLE DOSE
     Route: 048
     Dates: start: 20140621
  6. KEPPRA [Suspect]
     Active Substance: LEVETIRACETAM
     Dosage: 2000 MG,DOUBLE DOSE
     Route: 048
     Dates: start: 20140621
  7. KEPPRA [Suspect]
     Active Substance: LEVETIRACETAM
     Indication: EPILEPSY
     Dosage: UNK
     Route: 048
     Dates: start: 2007

REACTIONS (3)
  - Poisoning [Recovered/Resolved]
  - Overdose [Unknown]
  - Incorrect dosage administered [Unknown]

NARRATIVE: CASE EVENT DATE: 20140621
